FAERS Safety Report 4814957-8 (Version None)
Quarter: 2005Q4

REPORT INFORMATION
  Report Type: 
  Country: None (occurrence: None)
  Receive Date: 20051028
  Receipt Date: 20051014
  Transmission Date: 20060501
  Serious: Yes (Other)
  Sender: FDA-Public Use
  Company Number: DEWYE056214OCT05

PATIENT
  Age: 52 Year
  Sex: Female

DRUGS (2)
  1. ENBREL [Suspect]
     Indication: DRUG USE FOR UNKNOWN INDICATION
     Route: 058
     Dates: start: 20040101, end: 20050101
  2. DICLOFENAC [Concomitant]

REACTIONS (4)
  - HAEMORRHAGE SUBCUTANEOUS [None]
  - HYPOAESTHESIA [None]
  - MASTITIS [None]
  - MUSCLE SPASMS [None]
